FAERS Safety Report 23952972 (Version 1)
Quarter: 2024Q2

REPORT INFORMATION
  Report Type: Other
  Country: US (occurrence: None)
  Receive Date: 20240608
  Receipt Date: 20240608
  Transmission Date: 20240716
  Serious: No
  Sender: FDA-Public Use
  Company Number: US-ROCHE-3577599

PATIENT
  Sex: Male
  Weight: 102.15 kg

DRUGS (1)
  1. OCREVUS [Suspect]
     Active Substance: OCRELIZUMAB
     Indication: Multiple sclerosis
     Dosage: LAST INFUSION: /NOV/2023
     Route: 042
     Dates: start: 202310

REACTIONS (4)
  - Multiple sclerosis [Unknown]
  - Memory impairment [Unknown]
  - Bradykinesia [Not Recovered/Not Resolved]
  - COVID-19 [Not Recovered/Not Resolved]

NARRATIVE: CASE EVENT DATE: 20240603
